FAERS Safety Report 8474799-1 (Version None)
Quarter: 2012Q2

REPORT INFORMATION
  Report Type: 
  Country: None (occurrence: None)
  Receive Date: 20120628
  Receipt Date: 20120625
  Transmission Date: 20120825
  Serious: Yes (Other)
  Sender: FDA-Public Use
  Company Number: IT-BAYER-2012-059653

PATIENT
  Age: 86 Year
  Sex: Female

DRUGS (2)
  1. NEXAVAR [Suspect]
     Indication: HEPATIC NEOPLASM MALIGNANT
     Dosage: DAILY DOSE 400 MG
     Route: 048
     Dates: start: 20120310, end: 20120510
  2. ALFAFERONE [Concomitant]
     Dosage: 3000000 IU, QOD
     Route: 058
     Dates: end: 20120510

REACTIONS (1)
  - ASCITES [None]
